FAERS Safety Report 5170828-1 (Version None)
Quarter: 2006Q4

REPORT INFORMATION
  Report Type: 
  Country: None (occurrence: None)
  Receive Date: 20061206
  Receipt Date: 20061206
  Transmission Date: 20070319
  Serious: No
  Sender: FDA-Public Use
  Company Number: None

PATIENT
  Age: 8 Year
  Sex: Female

DRUGS (3)
  1. BACLOFEN [Suspect]
     Dosage: TABLET
  2. ORA-PLUS [Suspect]
     Dosage: LIQUID
  3. ORA-SWEET [Suspect]

REACTIONS (5)
  - DISCOMFORT [None]
  - DRUG DISPENSING ERROR [None]
  - INCORRECT DOSE ADMINISTERED [None]
  - MEDICATION ERROR [None]
  - MUSCULOSKELETAL STIFFNESS [None]
